FAERS Safety Report 8757177 (Version 2)
Quarter: 2012Q4

REPORT INFORMATION
  Report Type: 
  Country: US (occurrence: US)
  Receive Date: 20120828
  Receipt Date: 20121108
  Transmission Date: 20130627
  Serious: Yes (Death, Other)
  Sender: FDA-Public Use
  Company Number: US-PFIZER INC-2012209904

PATIENT
  Age: 30 Year
  Sex: Male

DRUGS (1)
  1. CHANTIX [Suspect]
     Dosage: 0.5mg/1mg
     Dates: start: 201102, end: 201102

REACTIONS (7)
  - Completed suicide [Fatal]
  - Depression [Unknown]
  - Mood swings [Unknown]
  - Abnormal behaviour [Unknown]
  - Anxiety [Unknown]
  - Anger [Unknown]
  - Agitation [Unknown]
